FAERS Safety Report 6155462-9 (Version None)
Quarter: 2009Q2

REPORT INFORMATION
  Report Type: 
  Country: None (occurrence: None)
  Receive Date: 20090415
  Receipt Date: 20090408
  Transmission Date: 20091009
  Serious: Yes (Other)
  Sender: FDA-Public Use
  Company Number: PHHY2009CA10005

PATIENT

DRUGS (1)
  1. DIOVAN [Suspect]
     Dosage: 160 MG, UNK

REACTIONS (2)
  - BLOOD PRESSURE INADEQUATELY CONTROLLED [None]
  - DIABETES MELLITUS [None]
